FAERS Safety Report 7127842-6 (Version None)
Quarter: 2010Q4

REPORT INFORMATION
  Report Type: 
  Country: None (occurrence: None)
  Receive Date: 20101029
  Receipt Date: 20100705
  Transmission Date: 20110411
  Serious: Yes (Hospitalization)
  Sender: FDA-Public Use
  Company Number: HU-003101

PATIENT
  Sex: Male
  Weight: 67 kg

DRUGS (4)
  1. DEGARELIX (DEGARELIX) (240 MG, 480 MG) [Suspect]
     Indication: PROSTATE CANCER
     Dosage: (240 MG 1X SUBCUTANEOUS), (480 MG 1X/3 MONTHS SUBCUTANEOUS)
     Route: 058
     Dates: start: 20100104, end: 20100104
  2. DEGARELIX (DEGARELIX) (240 MG, 480 MG) [Suspect]
     Indication: PROSTATE CANCER
     Dosage: (240 MG 1X SUBCUTANEOUS), (480 MG 1X/3 MONTHS SUBCUTANEOUS)
     Route: 058
     Dates: start: 20100108
  3. MEFORAL /00082701/ [Concomitant]
  4. METOPROLOL TARTRATE [Concomitant]

REACTIONS (2)
  - CATARACT [None]
  - DISEASE PROGRESSION [None]
